FAERS Safety Report 5074826-8 (Version None)
Quarter: 2006Q3

REPORT INFORMATION
  Report Type: 
  Country: None (occurrence: None)
  Receive Date: 20060804
  Receipt Date: 20060721
  Transmission Date: 20061208
  Serious: Yes (Hospitalization)
  Sender: FDA-Public Use
  Company Number: 2006S1006331

PATIENT
  Age: 70 Year
  Sex: Male

DRUGS (7)
  1. VINFLUNINE (624 MG) [Suspect]
     Indication: NEOPLASM MALIGNANT
     Dosage: 624 MG; IV
     Route: 042
     Dates: start: 20060125
  2. KETOCONAZOLE [Suspect]
     Indication: NEOPLASM MALIGNANT
     Dosage: 400 MG; Q24; PO
     Route: 048
     Dates: start: 20060103, end: 20060110
  3. NEULASTA [Concomitant]
  4. ZOLPIDEM [Concomitant]
  5. VALSARTAN [Concomitant]
  6. LORTAB [Concomitant]
  7. PERCOCET /00446701/ [Concomitant]

REACTIONS (5)
  - BACK PAIN [None]
  - MYALGIA [None]
  - SMALL INTESTINAL OBSTRUCTION [None]
  - STAPHYLOCOCCAL INFECTION [None]
  - UROSEPSIS [None]
